FAERS Safety Report 5328100-2 (Version None)
Quarter: 2007Q2

REPORT INFORMATION
  Report Type: 
  Country: None (occurrence: None)
  Receive Date: 20070514
  Receipt Date: 20070508
  Transmission Date: 20071010
  Serious: Yes (Hospitalization)
  Sender: FDA-Public Use
  Company Number: 163-C5013-07050465

PATIENT
  Age: 65 Year
  Sex: Male
  Weight: 69.8539 kg

DRUGS (1)
  1. CC-5013 (LENALIDOMIDE) (CAPSULES) [Suspect]
     Indication: CHRONIC LYMPHOCYTIC LEUKAEMIA
     Dosage: ORAL
     Route: 048
     Dates: start: 20070430, end: 20070507

REACTIONS (6)
  - BLOOD CREATININE INCREASED [None]
  - BLOOD PHOSPHORUS INCREASED [None]
  - BLOOD UREA INCREASED [None]
  - HYPOTENSION [None]
  - PLATELET COUNT DECREASED [None]
  - TUMOUR LYSIS SYNDROME [None]
